FAERS Safety Report 8819896 (Version 1)
Quarter: 2012Q4

REPORT INFORMATION
  Report Type: 
  Country: US (occurrence: US)
  Receive Date: 20121001
  Receipt Date: 20121001
  Transmission Date: 20130627
  Serious: No
  Sender: FDA-Public Use
  Company Number: US-ASTRAZENECA-2012SE73915

PATIENT
  Age: 77 Year
  Sex: Female
  Weight: 87.1 kg

DRUGS (10)
  1. SYMBICORT [Suspect]
     Indication: CHRONIC OBSTRUCTIVE PULMONARY DISEASE
     Dosage: 2 PUFFS, BID
     Route: 055
     Dates: start: 2002
  2. METOPROLOL [Suspect]
     Indication: HYPERTENSION
     Route: 048
  3. HYDROCHLOROTHIAZIDE [Concomitant]
     Indication: HYPERTENSION
  4. AMLODIPINE [Concomitant]
     Indication: HYPERTENSION
  5. ALLOPURINOL [Concomitant]
     Indication: ARTHRITIS
  6. SERTRALINE [Concomitant]
     Indication: DEPRESSION
  7. VALUME [Concomitant]
  8. Q-BAR [Concomitant]
     Indication: ASTHMA
  9. LATANOTROST/SOL [Concomitant]
     Indication: CATARACT
  10. OXYBUTYLINE [Concomitant]
     Indication: BLADDER DISORDER

REACTIONS (1)
  - Dementia [Unknown]
